FAERS Safety Report 7652755-0 (Version None)
Quarter: 2011Q3

REPORT INFORMATION
  Report Type: 
  Country: None (occurrence: None)
  Receive Date: 20110803
  Receipt Date: 20110720
  Transmission Date: 20111222
  Serious: Yes (Other)
  Sender: FDA-Public Use
  Company Number: US-RANBAXY-2010RR-38605

PATIENT
  Sex: Female
  Weight: 63 kg

DRUGS (4)
  1. PRAVASTATIN [Suspect]
     Indication: ILL-DEFINED DISORDER
     Route: 065
  2. LEVAQUIN [Suspect]
     Indication: DERMATITIS
  3. CIPROFLAXACIN [Suspect]
     Indication: ILL-DEFINED DISORDER
     Dosage: UNK
     Route: 065
  4. LEVAQUIN [Suspect]
     Indication: MASTITIS
     Dosage: 500 MG, QD
     Route: 048
     Dates: start: 20060606, end: 20060615

REACTIONS (3)
  - TENDON RUPTURE [None]
  - TENDONITIS [None]
  - TENOSYNOVITIS [None]
